FAERS Safety Report 8425049-3 (Version None)
Quarter: 2012Q2

REPORT INFORMATION
  Report Type: 
  Country: None (occurrence: None)
  Receive Date: 20120605
  Receipt Date: 20120605
  Transmission Date: 20120825
  Serious: Yes (Hospitalization)
  Sender: FDA-Public Use
  Company Number: None

PATIENT
  Sex: Male
  Weight: 67.9 kg

DRUGS (8)
  1. MIRALAX [Concomitant]
  2. PANTOPRAZOLE [Concomitant]
  3. SENNA-MINT WAF [Concomitant]
  4. DOCUSATE [Concomitant]
  5. TAXOL [Suspect]
     Dosage: 438 MG
     Dates: end: 20120517
  6. METOPROLOL SUCCINATE [Concomitant]
  7. FLOMAX [Concomitant]
  8. ERGOCALCIFEROL [Concomitant]

REACTIONS (1)
  - HYPERCALCAEMIA [None]
